FAERS Safety Report 10688113 (Version 2)
Quarter: 2015Q1

REPORT INFORMATION
  Report Type: Spontaneous
  Country: GR (occurrence: GR)
  Receive Date: 20150102
  Receipt Date: 20150102
  Transmission Date: 20150720
  Serious: Yes (Hospitalization, Other)
  Sender: FDA-Public Use
  Company Number: PHHY2014GR121856

PATIENT
  Age: 22 Year
  Sex: Female

DRUGS (2)
  1. GILENYA [Suspect]
     Active Substance: FINGOLIMOD HYDROCHLORIDE
     Indication: MULTIPLE SCLEROSIS
     Dosage: 0.5 MG, QD
     Route: 065
     Dates: start: 201109
  2. GILENYA [Suspect]
     Active Substance: FINGOLIMOD HYDROCHLORIDE
     Dosage: 0.5 MG, QD
     Route: 065
     Dates: end: 201309

REACTIONS (20)
  - Right hemisphere deficit syndrome [Unknown]
  - Epstein-Barr virus antibody positive [Unknown]
  - CD4/CD8 ratio decreased [Unknown]
  - Vision blurred [Recovering/Resolving]
  - Blood cholinesterase increased [Unknown]
  - B-lymphocyte count increased [Unknown]
  - Hemiparesis [Recovering/Resolving]
  - Facial paresis [Recovering/Resolving]
  - Brain oedema [Unknown]
  - Neutrophil count decreased [Unknown]
  - White blood cell count decreased [Unknown]
  - Natural killer cell count increased [Unknown]
  - Antiphospholipid syndrome [Unknown]
  - Hemiplegia [Recovering/Resolving]
  - Multiple sclerosis relapse [Recovering/Resolving]
  - Central nervous system lesion [Unknown]
  - Brain injury [Unknown]
  - Lymphopenia [Recovering/Resolving]
  - T-lymphocyte count decreased [Unknown]
  - Ataxia [Unknown]

NARRATIVE: CASE EVENT DATE: 201408
